FAERS Safety Report 9468967 (Version 1)
Quarter: 2013Q3

REPORT INFORMATION
  Report Type: Spontaneous
  Country: US (occurrence: US)
  Receive Date: 20130821
  Receipt Date: 20130821
  Transmission Date: 20140515
  Serious: Yes (Other)
  Sender: FDA-Public Use
  Company Number: CHPA2013US013004

PATIENT
  Age: 52 Year
  Sex: Male

DRUGS (3)
  1. BENEFIBER W/ WHEAT DEXTRIN [Suspect]
     Indication: CONSTIPATION
     Dosage: 1 TSP, QD
     Route: 048
     Dates: start: 2011, end: 2012
  2. BENEFIBER W/ WHEAT DEXTRIN [Suspect]
     Dosage: 2 TSP, UNK
     Route: 048
  3. TRAMADOL [Suspect]
     Indication: PAIN
     Dosage: UNK, UNK
     Route: 065
     Dates: start: 201305

REACTIONS (3)
  - Nephrolithiasis [Recovered/Resolved]
  - Therapeutic response unexpected [Unknown]
  - Off label use [Unknown]
